FAERS Safety Report 7176851-X (Version None)
Quarter: 2010Q4

REPORT INFORMATION
  Report Type: 
  Country: None (occurrence: None)
  Receive Date: 20101215
  Receipt Date: 20101215
  Transmission Date: 20110411
  Serious: Yes (Other)
  Sender: FDA-Public Use
  Company Number: None

PATIENT
  Age: 37 Year
  Sex: Female
  Weight: 52.1637 kg

DRUGS (1)
  1. ROLAIDS CHEWABLE TAB [Suspect]
     Indication: DYSPEPSIA
     Dosage: 1 TO 2 CHEWS PO
     Route: 048
     Dates: start: 20101031, end: 20101214

REACTIONS (3)
  - ABDOMINAL PAIN [None]
  - CONSTIPATION [None]
  - VOMITING [None]
